FAERS Safety Report 4310232-9 (Version None)
Quarter: 2004Q1

REPORT INFORMATION
  Report Type: 
  Country: None (occurrence: None)
  Receive Date: 20040301
  Receipt Date: 20040301
  Transmission Date: 20041129
  Serious: Yes (Disabling)
  Sender: FDA-Public Use
  Company Number: None

PATIENT
  Age: 39 Year
  Sex: Female
  Weight: 65.7716 kg

DRUGS (2)
  1. BOTOX ALLERGAN [Suspect]
     Indication: TORTICOLLIS
     Dosage: 100 UNITS 05/30/2003 INTRAMUSCULAR, 100 UNITS 06/13/2003 INTRAMUSCULAR
     Route: 030
     Dates: start: 20030530
  2. BOTOX ALLERGAN [Suspect]
     Indication: TORTICOLLIS
     Dosage: 100 UNITS 05/30/2003 INTRAMUSCULAR, 100 UNITS 06/13/2003 INTRAMUSCULAR
     Route: 030
     Dates: start: 20030613

REACTIONS (6)
  - ARTHRALGIA [None]
  - ASTHENIA [None]
  - FATIGUE [None]
  - IMPAIRED WORK ABILITY [None]
  - MIGRAINE [None]
  - PAIN [None]
